FAERS Safety Report 4920108-1 (Version None)
Quarter: 2006Q1

REPORT INFORMATION
  Report Type: 
  Country: None (occurrence: None)
  Receive Date: 20060217
  Receipt Date: 20060201
  Transmission Date: 20060701
  Serious: Yes (Death, Hospitalization, Other)
  Sender: FDA-Public Use
  Company Number: BR-2006-001836

PATIENT
  Age: 50 Year
  Sex: Female

DRUGS (1)
  1. BETAFERON (INTERFERON BETA-1B) INJECTION, 250?G [Suspect]
     Indication: MULTIPLE SCLEROSIS
     Dosage: 8 MIU, EVERY 2D, SUBCUTANEOUS
     Route: 058
     Dates: start: 20051001, end: 20051214

REACTIONS (13)
  - ABASIA [None]
  - BRONCHOPNEUMONIA [None]
  - CONVULSION [None]
  - DEHYDRATION [None]
  - DISEASE PROGRESSION [None]
  - DIZZINESS [None]
  - MALNUTRITION [None]
  - MULTIPLE SCLEROSIS [None]
  - MUSCLE RIGIDITY [None]
  - NAUSEA [None]
  - PYREXIA [None]
  - RESPIRATORY FAILURE [None]
  - URINARY TRACT INFECTION [None]
